FAERS Safety Report 23832967 (Version 3)
Quarter: 2024Q2

REPORT INFORMATION
  Report Type: Report from Study
  Country: MX (occurrence: MX)
  Receive Date: 20240508
  Receipt Date: 20240626
  Transmission Date: 20240716
  Serious: Yes (Other)
  Sender: FDA-Public Use
  Company Number: MX-002147023-NVSC2023MX156931

PATIENT
  Sex: Female
  Weight: 68 kg

DRUGS (5)
  1. TASIGNA [Suspect]
     Active Substance: NILOTINIB
     Indication: Chronic myeloid leukaemia
     Dosage: 200 MG, Q12H (2)
     Route: 048
     Dates: start: 20210204
  2. TASIGNA [Suspect]
     Active Substance: NILOTINIB
     Dosage: 400 MG, BID
     Route: 048
     Dates: start: 20220204
  3. TASIGNA [Suspect]
     Active Substance: NILOTINIB
     Dosage: UNK, QD (4 OF 200)
     Route: 048
  4. TASIGNA [Suspect]
     Active Substance: NILOTINIB
     Dosage: 2 DOSAGE FORM, Q12H
     Route: 048
  5. GLIVEC [Suspect]
     Active Substance: IMATINIB MESYLATE
     Indication: Chronic myeloid leukaemia
     Dosage: UNK
     Route: 048

REACTIONS (39)
  - Hypothyroidism [Unknown]
  - Hyperkeratosis [Not Recovered/Not Resolved]
  - Oxygen saturation decreased [Unknown]
  - Emotional disorder [Recovering/Resolving]
  - Depressed mood [Unknown]
  - Somnolence [Unknown]
  - Influenza [Recovered/Resolved]
  - Rhinorrhoea [Recovered/Resolved]
  - Infection [Unknown]
  - Speech disorder [Recovering/Resolving]
  - Illness [Recovered/Resolved]
  - Pyrexia [Recovered/Resolved]
  - Pain [Recovered/Resolved]
  - Insulin resistance [Not Recovered/Not Resolved]
  - Hyperhidrosis [Recovered/Resolved]
  - Blood triglycerides increased [Not Recovered/Not Resolved]
  - Pharyngitis [Recovering/Resolving]
  - Cough [Recovering/Resolving]
  - Productive cough [Recovered/Resolved]
  - Anger [Unknown]
  - Dysphonia [Unknown]
  - Urinary incontinence [Unknown]
  - Fear [Unknown]
  - Discomfort [Unknown]
  - Malaise [Unknown]
  - Anxiety [Recovering/Resolving]
  - Alopecia [Not Recovered/Not Resolved]
  - Cough [Recovered/Resolved]
  - Temperature intolerance [Unknown]
  - Weight increased [Unknown]
  - Cellulitis [Not Recovered/Not Resolved]
  - Fluid retention [Unknown]
  - Headache [Not Recovered/Not Resolved]
  - Hair texture abnormal [Not Recovered/Not Resolved]
  - Polymerase chain reaction [Unknown]
  - Gene mutation [Not Recovered/Not Resolved]
  - Dry skin [Not Recovered/Not Resolved]
  - Drug resistance [Unknown]
  - Loss of therapeutic response [Not Recovered/Not Resolved]

NARRATIVE: CASE EVENT DATE: 20180101
